FAERS Safety Report 6358632-X (Version None)
Quarter: 2009Q3

REPORT INFORMATION
  Report Type: 
  Country: None (occurrence: None)
  Receive Date: 20090914
  Receipt Date: 20090902
  Transmission Date: 20100115
  Serious: Yes (Other)
  Sender: FDA-Public Use
  Company Number: 237577K09USA

PATIENT
  Age: 55 Year
  Sex: Female
  Weight: 88 kg

DRUGS (23)
  1. REBIF [Suspect]
     Indication: MULTIPLE SCLEROSIS
     Dosage: 44 MCG, 3 IN 1 WEEKS, SUBCUTANEOUS
     Route: 058
     Dates: start: 20090325
  2. IMURAN [Concomitant]
  3. LORTAB (VICODIN) [Concomitant]
  4. ATENOLOL [Concomitant]
  5. AMLODIPINE BESYLATE [Concomitant]
  6. HYDROCORISONE (HYDROCOTISONE /00028601/) [Concomitant]
  7. RANITIDINE (RANITIDINE /00550801) [Concomitant]
  8. CELEBREX [Concomitant]
  9. BACLOFEN [Concomitant]
  10. PREMARIN [Concomitant]
  11. PROGESTERONE [Concomitant]
  12. TRAZODONE HCL [Concomitant]
  13. VITAMIN D (VITAMIN D NOS) [Concomitant]
  14. FOSAMAX [Concomitant]
  15. FLEXERIL [Concomitant]
  16. ADVAIR HFA [Concomitant]
  17. PROVENTIL HFA (SALBUTAMOL /00139501/) [Concomitant]
  18. MATURE MULTI (MULTIVITAMIN /00831701/) [Concomitant]
  19. SUPER CALCIUM WITH VITAMINS D (CALCIUM WITH VITAMIN D) [Concomitant]
  20. OMEGA-3 FISH OL (OMEGA-3 TRIGLYCERIDES) [Concomitant]
  21. MAGNESIUM OXIDE (MAGNESIUM OXIDE) [Concomitant]
  22. MEGA DIGESTIVE ENZYMES WITH PANCREATIN 10X (ALL OTHER THERAPEUTIC PROD [Concomitant]
  23. PROBIOTICS (MINERAL SUPPLEMENTS) [Concomitant]

REACTIONS (3)
  - BONE PAIN [None]
  - SPINAL FUSION SURGERY [None]
  - SPINAL LAMINECTOMY [None]
